FAERS Safety Report 8154445-7 (Version None)
Quarter: 2012Q1

REPORT INFORMATION
  Report Type: 
  Country: None (occurrence: None)
  Receive Date: 20120221
  Receipt Date: 20120209
  Transmission Date: 20120608
  Serious: Yes (Life-Threatening, Hospitalization, Disabling, Other)
  Sender: FDA-Public Use
  Company Number: US-MYLANLABS-2012S1003513

PATIENT
  Sex: Male

DRUGS (25)
  1. ASPIRIN [Concomitant]
  2. SIMVASTATIN [Concomitant]
  3. GLYBURIDE [Concomitant]
  4. METOLAZONE [Concomitant]
  5. NITROGLYCERIN [Concomitant]
  6. POTASSIUM CHLORIDE [Concomitant]
  7. ATENOLOL [Concomitant]
  8. LISINOPRIL [Concomitant]
  9. OMEPRAZOLE [Concomitant]
  10. VERSED [Concomitant]
  11. ZOLOFT [Concomitant]
  12. HYDRALAZINE HCL [Concomitant]
  13. IMODIUM [Concomitant]
  14. NYSTATIN [Concomitant]
  15. ACETAMINOPHEN [Concomitant]
  16. CALMOSEPTINE /00244301/ [Concomitant]
  17. FENTANYL [Concomitant]
  18. LASIX [Concomitant]
  19. PRILOSEC [Concomitant]
  20. DIGOXIN [Suspect]
     Indication: PRODUCT USED FOR UNKNOWN INDICATION
     Route: 048
     Dates: start: 20070514, end: 20080508
  21. AMIODARONE HCL [Concomitant]
  22. COUMADIN [Concomitant]
  23. IRON SULFATETHIAMIN COMPOUND TAB [Concomitant]
  24. PEPTO BISMOL /00139305/ [Concomitant]
  25. ZAROXOLYN [Concomitant]

REACTIONS (65)
  - OEDEMA [None]
  - ATRIAL FIBRILLATION [None]
  - BACK PAIN [None]
  - CHEST PAIN [None]
  - METABOLIC ACIDOSIS [None]
  - SUPRAVENTRICULAR EXTRASYSTOLES [None]
  - DIZZINESS [None]
  - NAUSEA [None]
  - RENAL FAILURE ACUTE [None]
  - SKIN CANDIDA [None]
  - CHEST X-RAY ABNORMAL [None]
  - OSTEOARTHRITIS [None]
  - TENDERNESS [None]
  - OSTEOPENIA [None]
  - CARDIAC FAILURE CONGESTIVE [None]
  - DYSPNOEA [None]
  - ATRIOVENTRICULAR BLOCK SECOND DEGREE [None]
  - OEDEMA PERIPHERAL [None]
  - FALL [None]
  - MITRAL VALVE INCOMPETENCE [None]
  - DYSLIPIDAEMIA [None]
  - HYPOALBUMINAEMIA [None]
  - CHEST DISCOMFORT [None]
  - ASCITES [None]
  - CEREBRAL HYGROMA [None]
  - HEARING DISABILITY [None]
  - ABDOMINAL DISTENSION [None]
  - ADVERSE DRUG REACTION [None]
  - OBSTRUCTIVE UROPATHY [None]
  - COUGH [None]
  - VIRAL INFECTION [None]
  - EXCORIATION [None]
  - PALLOR [None]
  - PLEURAL EFFUSION [None]
  - HYPOGLYCAEMIA [None]
  - HAEMORRHOIDS [None]
  - CARDIOMEGALY [None]
  - HYPOKALAEMIA [None]
  - ANAEMIA [None]
  - RENAL FAILURE CHRONIC [None]
  - BLOOD TRIGLYCERIDES INCREASED [None]
  - HIGH DENSITY LIPOPROTEIN DECREASED [None]
  - ARRHYTHMIA [None]
  - GROIN PAIN [None]
  - DIARRHOEA [None]
  - EPISTAXIS [None]
  - COLONIC POLYP [None]
  - HYPERLIPIDAEMIA [None]
  - PAIN [None]
  - LABORATORY TEST ABNORMAL [None]
  - MALNUTRITION [None]
  - DYSPNOEA EXERTIONAL [None]
  - DEHYDRATION [None]
  - MOVEMENT DISORDER [None]
  - CONDITION AGGRAVATED [None]
  - DIABETES MELLITUS [None]
  - RESPIRATORY FAILURE [None]
  - SLEEP DISORDER [None]
  - CARDIAC PACEMAKER INSERTION [None]
  - SYNCOPE [None]
  - WEIGHT INCREASED [None]
  - ASTHENIA [None]
  - WALKING AID USER [None]
  - HYPERKALAEMIA [None]
  - RECTAL HAEMORRHAGE [None]
